FAERS Safety Report 5628698-0 (Version None)
Quarter: 2008Q1

REPORT INFORMATION
  Report Type: 
  Country: None (occurrence: None)
  Receive Date: 20080215
  Receipt Date: 20080215
  Transmission Date: 20080703
  Serious: Yes (Hospitalization)
  Sender: FDA-Public Use
  Company Number: None

PATIENT
  Age: 47 Year
  Sex: Male

DRUGS (2)
  1. LISINOPRIL [Suspect]
     Indication: HYPERTENSION
     Dosage: ORAL;20.0 MILLIGRAM
     Route: 048
     Dates: start: 20051229, end: 20071229
  2. ASPIRIN [Concomitant]

REACTIONS (3)
  - COUGH [None]
  - LIP SWELLING [None]
  - SWELLING FACE [None]
